FAERS Safety Report 13544730 (Version 1)
Quarter: 2017Q2

REPORT INFORMATION
  Report Type: Spontaneous
  Country: BR (occurrence: BR)
  Receive Date: 20170515
  Receipt Date: 20170515
  Transmission Date: 20170830
  Serious: Yes (Other)
  Sender: FDA-Public Use
  Company Number: BR-VALIDUS PHARMACEUTICALS LLC-BR-2017VAL000728

PATIENT

DRUGS (1)
  1. PARLODEL [Suspect]
     Active Substance: BROMOCRIPTINE MESYLATE
     Indication: BLOOD PROLACTIN ABNORMAL
     Dosage: 1 DF, QD
     Route: 048

REACTIONS (8)
  - Blood prolactin abnormal [Unknown]
  - Amenorrhoea [Unknown]
  - Nervousness [Unknown]
  - Breast mass [Unknown]
  - Galactostasis [Unknown]
  - Mastitis [Unknown]
  - Hormone level abnormal [Unknown]
  - Breast swelling [Unknown]
